FAERS Safety Report 9478544 (Version 4)
Quarter: 2013Q4

REPORT INFORMATION
  Report Type: Report from Study
  Country: PE (occurrence: PE)
  Receive Date: 20130827
  Receipt Date: 20131010
  Transmission Date: 20140711
  Serious: Yes (Disabling, Other)
  Sender: FDA-Public Use
  Company Number: PE-VERTEX PHARMACEUTICALS INC-2013-009068

PATIENT
  Age: 58 Year
  Sex: Male
  Weight: 68 kg

DRUGS (4)
  1. VX-950 (TELAPREVIR) [Suspect]
     Indication: HEPATITIS C
     Dosage: 750 MG, TID
     Route: 048
     Dates: start: 20130715, end: 20130720
  2. PEGINTERFERON ALFA [Concomitant]
     Indication: CHRONIC HEPATITIS C
     Dosage: DOSAGE FORM: UNSPECIFIED
     Route: 065
     Dates: end: 20130720
  3. RIBAVIRIN [Concomitant]
     Indication: CHRONIC HEPATITIS C
     Dosage: DOSAGE FORM: UNSPECIFIED
     Route: 065
     Dates: end: 20130720
  4. ALPRAZOLAM [Concomitant]
     Dosage: DOSAGE FORM: UNSPECIFIED
     Route: 065

REACTIONS (6)
  - Anxiety [Recovered/Resolved]
  - Hypophagia [Unknown]
  - Insomnia [Unknown]
  - Restlessness [Unknown]
  - Anal pruritus [Recovered/Resolved]
  - Nausea [Recovered/Resolved]
